FAERS Safety Report 22336022 (Version 1)
Quarter: 2023Q2

REPORT INFORMATION
  Report Type: Spontaneous
  Country: US (occurrence: None)
  Receive Date: 20230518
  Receipt Date: 20230518
  Transmission Date: 20230721
  Serious: No
  Sender: FDA-Public Use
  Company Number: US-ROCHE-3147386

PATIENT
  Sex: Female
  Weight: 69.644 kg

DRUGS (3)
  1. ACTEMRA [Suspect]
     Active Substance: TOCILIZUMAB
     Indication: Rheumatoid arthritis
     Dosage: STRENGTH: 162MG/0.9M
     Route: 058
     Dates: start: 20220628
  2. ACTEMRA [Suspect]
     Active Substance: TOCILIZUMAB
  3. ORENCIA [Concomitant]
     Active Substance: ABATACEPT
     Route: 065

REACTIONS (6)
  - Dry skin [Unknown]
  - Rash erythematous [Unknown]
  - Injection site rash [Unknown]
  - Pruritus [Unknown]
  - Injection site erythema [Unknown]
  - Weight increased [Unknown]
